FAERS Safety Report 21174813 (Version 1)
Quarter: 2022Q3

REPORT INFORMATION
  Report Type: Spontaneous
  Country: US (occurrence: US)
  Receive Date: 20220805
  Receipt Date: 20220805
  Transmission Date: 20221027
  Serious: No
  Sender: FDA-Public Use
  Company Number: US-Accord-247169

PATIENT
  Age: 50 Year
  Sex: Female
  Weight: 89.5 kg

DRUGS (24)
  1. DOCETAXEL [Suspect]
     Active Substance: DOCETAXEL
     Indication: Invasive lobular breast carcinoma
     Dosage: DOSE: 75 MG/M2 * 2.07 M2?155.2 MG IN NACL 0.9%
     Dates: start: 20191203
  2. PARAPLATIN [Suspect]
     Active Substance: CARBOPLATIN
     Indication: Invasive lobular breast carcinoma
     Dosage: DOSE; 778.8 MG?778.8 MG IN D5W 250 ML INFUSION
     Dates: start: 20191203
  3. HERCEPTIN [Suspect]
     Active Substance: TRASTUZUMAB
     Indication: Invasive lobular breast carcinoma
     Dosage: DOSE: 8 MG/KG * 90.9 KG?727.2 MG IN NACL 0.9% (NS) 250 ML INFUSION
     Dates: start: 20191203
  4. PERJETA [Suspect]
     Active Substance: PERTUZUMAB
     Indication: Invasive lobular breast carcinoma
     Dosage: DOSE: 840 MG?840 MG IN NACL 0.9% (NS) 250 ML INFUSION
     Dates: start: 20191203
  5. DOCETAXEL [Suspect]
     Active Substance: DOCETAXEL
     Indication: Invasive lobular breast carcinoma
     Dosage: DOSE: 75 MG/M2 * 2.07 M2?155.2 MG IN NACL 0.9%
     Dates: start: 20200102
  6. DOCETAXEL [Suspect]
     Active Substance: DOCETAXEL
     Indication: Invasive lobular breast carcinoma
     Dosage: DOSE: 75 MG/M2 * 2.07 M2?155.2 MG IN NACL 0.9%
     Dates: start: 20200123
  7. DOCETAXEL [Suspect]
     Active Substance: DOCETAXEL
     Indication: Invasive lobular breast carcinoma
     Dosage: DOSE: 75 MG/M2 * 2.07 M2?155.2 MG IN NACL 0.9%
     Dates: start: 20200220
  8. DOCETAXEL [Suspect]
     Active Substance: DOCETAXEL
     Indication: Invasive lobular breast carcinoma
     Dosage: DOSE: 75 MG/M2 * 2.07 M2?155.2 MG IN NACL 0.9%
     Dates: start: 20200312
  9. DOCETAXEL [Suspect]
     Active Substance: DOCETAXEL
     Indication: Invasive lobular breast carcinoma
     Dosage: DOSE: 75 MG/M2 * 2.07 M2?155.2 MG IN NACL 0.9%
     Dates: start: 20200402
  10. PARAPLATIN [Suspect]
     Active Substance: CARBOPLATIN
     Indication: Invasive lobular breast carcinoma
     Dosage: DOSE; 778.8 MG?778.8 MG IN D5W 250 ML INFUSION
     Dates: start: 20200102
  11. PARAPLATIN [Suspect]
     Active Substance: CARBOPLATIN
     Indication: Invasive lobular breast carcinoma
     Dosage: DOSE; 778.8 MG?778.8 MG IN D5W 250 ML INFUSION
     Dates: start: 20200123
  12. PARAPLATIN [Suspect]
     Active Substance: CARBOPLATIN
     Indication: Invasive lobular breast carcinoma
     Dosage: DOSE; 778.8 MG?778.8 MG IN D5W 250 ML INFUSION
     Dates: start: 20200220
  13. PARAPLATIN [Suspect]
     Active Substance: CARBOPLATIN
     Indication: Invasive lobular breast carcinoma
     Dosage: DOSE; 778.8 MG?778.8 MG IN D5W 250 ML INFUSION
     Dates: start: 20200312
  14. PARAPLATIN [Suspect]
     Active Substance: CARBOPLATIN
     Indication: Invasive lobular breast carcinoma
     Dosage: DOSE; 778.8 MG?778.8 MG IN D5W 250 ML INFUSION
     Dates: start: 20200402
  15. HERCEPTIN [Suspect]
     Active Substance: TRASTUZUMAB
     Indication: Invasive lobular breast carcinoma
     Dosage: DOSE: 8 MG/KG * 90.9 KG?727.2 MG IN NACL 0.9% (NS) 250 ML INFUSION
     Dates: start: 20200102
  16. HERCEPTIN [Suspect]
     Active Substance: TRASTUZUMAB
     Indication: Invasive lobular breast carcinoma
     Dosage: DOSE: 8 MG/KG * 90.9 KG?727.2 MG IN NACL 0.9% (NS) 250 ML INFUSION
     Dates: start: 20200123
  17. HERCEPTIN [Suspect]
     Active Substance: TRASTUZUMAB
     Indication: Invasive lobular breast carcinoma
     Dosage: DOSE: 8 MG/KG * 90.9 KG?727.2 MG IN NACL 0.9% (NS) 250 ML INFUSION
     Dates: start: 20200220
  18. HERCEPTIN [Suspect]
     Active Substance: TRASTUZUMAB
     Indication: Invasive lobular breast carcinoma
     Dosage: DOSE: 8 MG/KG * 90.9 KG?727.2 MG IN NACL 0.9% (NS) 250 ML INFUSION
     Dates: start: 20200312
  19. HERCEPTIN [Suspect]
     Active Substance: TRASTUZUMAB
     Indication: Invasive lobular breast carcinoma
     Dosage: DOSE: 8 MG/KG * 90.9 KG?727.2 MG IN NACL 0.9% (NS) 250 ML INFUSION
     Dates: start: 20200402
  20. PERJETA [Suspect]
     Active Substance: PERTUZUMAB
     Indication: Invasive lobular breast carcinoma
     Dosage: DOSE: 840 MG?840 MG IN NACL 0.9% (NS) 250 ML INFUSION
     Dates: start: 20200102
  21. PERJETA [Suspect]
     Active Substance: PERTUZUMAB
     Indication: Invasive lobular breast carcinoma
     Dosage: DOSE: 840 MG?840 MG IN NACL 0.9% (NS) 250 ML INFUSION
     Dates: start: 20200123
  22. PERJETA [Suspect]
     Active Substance: PERTUZUMAB
     Indication: Invasive lobular breast carcinoma
     Dosage: DOSE: 840 MG?840 MG IN NACL 0.9% (NS) 250 ML INFUSION
     Dates: start: 20200220
  23. PERJETA [Suspect]
     Active Substance: PERTUZUMAB
     Indication: Invasive lobular breast carcinoma
     Dosage: DOSE: 840 MG?840 MG IN NACL 0.9% (NS) 250 ML INFUSION
     Dates: start: 20200312
  24. PERJETA [Suspect]
     Active Substance: PERTUZUMAB
     Indication: Invasive lobular breast carcinoma
     Dosage: DOSE: 840 MG?840 MG IN NACL 0.9% (NS) 250 ML INFUSION
     Dates: start: 20200402

REACTIONS (2)
  - Dry eye [Unknown]
  - Refraction disorder [Unknown]
